FAERS Safety Report 9538079 (Version 1)
Quarter: 2013Q3

REPORT INFORMATION
  Report Type: Spontaneous
  Country: US (occurrence: US)
  Receive Date: 20130920
  Receipt Date: 20130920
  Transmission Date: 20140515
  Serious: No
  Sender: FDA-Public Use
  Company Number: US-B.I. PHARMACEUTICALS,INC./RIDGEFIELD-2013-BI-28649BP

PATIENT
  Age: 73 Year
  Sex: Male
  Weight: 53 kg

DRUGS (5)
  1. COMBIVENT [Suspect]
     Indication: ASTHMA EXERCISE INDUCED
     Dosage: STRENGTH: 20 MCG / 100 MCG; DAILY DOSE: 80 MCG / 400 MCG
     Route: 055
     Dates: start: 201305
  2. OXYCONTIN [Concomitant]
     Indication: BACK PAIN
     Dosage: 40 MG
     Route: 048
     Dates: start: 2008
  3. PREDNISONE [Concomitant]
     Indication: ASTHMA EXERCISE INDUCED
     Dosage: 10 MG
     Route: 048
     Dates: start: 1999
  4. TRAMADOL [Concomitant]
     Indication: BACK PAIN
     Dosage: 50 MG
     Route: 048
     Dates: start: 201301
  5. PLAVIX [Concomitant]
     Indication: MYOCARDIAL INFARCTION
     Dosage: 75 MG
     Route: 048
     Dates: start: 201104

REACTIONS (3)
  - Abnormal loss of weight [Not Recovered/Not Resolved]
  - Off label use [Not Recovered/Not Resolved]
  - Drug ineffective [Not Recovered/Not Resolved]
